FAERS Safety Report 16743618 (Version 1)
Quarter: 2019Q3

REPORT INFORMATION
  Report Type: Spontaneous
  Country: FR (occurrence: FR)
  Receive Date: 20190827
  Receipt Date: 20190827
  Transmission Date: 20191005
  Serious: Yes (Hospitalization)
  Sender: FDA-Public Use
  Company Number: FR-ACCORD-152801

PATIENT
  Age: 59 Year
  Sex: Male

DRUGS (6)
  1. BENDAMUSTINE ACCORD [Suspect]
     Active Substance: BENDAMUSTINE
     Indication: HODGKIN^S DISEASE
     Dates: start: 20180712, end: 20180803
  2. LEXOMIL [Concomitant]
     Active Substance: BROMAZEPAM
     Dosage: STRENGTH: 12 MG
  3. ADCETRIS [Concomitant]
     Active Substance: BRENTUXIMAB VEDOTIN
     Indication: HODGKIN^S DISEASE
     Dosage: STRENGTH: 50 MG, POWDER FOR CONCENTRATE FOR SOLUTION FOR INFUSION
     Dates: start: 20180712
  4. INFEXIUM [Concomitant]
  5. ZELITREX [Concomitant]
     Active Substance: VALACYCLOVIR HYDROCHLORIDE
     Indication: PROPHYLAXIS
  6. BACTRIM [Concomitant]
     Active Substance: SULFAMETHOXAZOLE\TRIMETHOPRIM
     Indication: PROPHYLAXIS

REACTIONS (3)
  - Hyperthermia [Recovered/Resolved]
  - Shock [Recovered/Resolved]
  - Infusion related reaction [Recovered/Resolved]

NARRATIVE: CASE EVENT DATE: 20180802
